FAERS Safety Report 8558409-0 (Version None)
Quarter: 2012Q3

REPORT INFORMATION
  Report Type: 
  Country: None (occurrence: None)
  Receive Date: 20120801
  Receipt Date: 20120724
  Transmission Date: 20120928
  Serious: Yes (Life-Threatening, Hospitalization, Other)
  Sender: FDA-Public Use
  Company Number: US-ABBOTT-12P-163-0942085-00

PATIENT
  Sex: Male
  Weight: 136.2 kg

DRUGS (6)
  1. ENALAPRIL MALEATE AND HYDROCHLOROTHIAZIDE [Concomitant]
     Indication: HYPERTENSION
     Dosage: 10/25 MG
     Dates: end: 20120531
  2. ATENOLOL [Concomitant]
     Indication: HYPERTENSION
     Dates: end: 20120531
  3. METFORMIN HYDROCHLORIDE [Concomitant]
     Indication: DIABETES MELLITUS
  4. HUMIRA [Suspect]
     Indication: PSORIASIS
     Route: 058
     Dates: start: 20120207, end: 20120527
  5. HUMIRA [Suspect]
     Route: 058
     Dates: start: 20120608
  6. VYTORIN [Concomitant]
     Indication: HYPERCHOLESTEROLAEMIA
     Dosage: 10/20 MG

REACTIONS (5)
  - UROSEPSIS [None]
  - RENAL FAILURE ACUTE [None]
  - OBSTRUCTIVE UROPATHY [None]
  - PNEUMONIA [None]
  - ACUTE RESPIRATORY FAILURE [None]
